FAERS Safety Report 10557537 (Version 3)
Quarter: 2014Q4

REPORT INFORMATION
  Report Type: Spontaneous
  Country: CN (occurrence: CN)
  Receive Date: 20141031
  Receipt Date: 20141113
  Transmission Date: 20150529
  Serious: Yes (Other)
  Sender: FDA-Public Use
  Company Number: CN-JNJFOC-20141017388

PATIENT
  Age: 57 Year
  Sex: Male
  Weight: 60 kg

DRUGS (1)
  1. MOTRIN INFANTS [Suspect]
     Active Substance: IBUPROFEN
     Indication: PYREXIA
     Route: 048
     Dates: start: 20140324, end: 20140324

REACTIONS (4)
  - Blister [Recovering/Resolving]
  - Pruritus [None]
  - Pain [None]
  - Wrong patient received medication [Unknown]

NARRATIVE: CASE EVENT DATE: 20140325
